FAERS Safety Report 10008499 (Version 2)
Quarter: 2014Q1

REPORT INFORMATION
  Report Type: Spontaneous
  Country: JP (occurrence: JP)
  Receive Date: 20140313
  Receipt Date: 20140331
  Transmission Date: 20141002
  Serious: Yes (Hospitalization, Other)
  Sender: FDA-Public Use
  Company Number: JP-ELI_LILLY_AND_COMPANY-JP201403001486

PATIENT
  Age: 65 Year
  Sex: Male

DRUGS (3)
  1. GEMCITABINE HYDROCHLORIDE [Suspect]
     Indication: GALLBLADDER CANCER STAGE IV
     Dosage: 1000 MG/M2, UNK
     Route: 042
  2. CISPLATIN [Concomitant]
     Indication: GALLBLADDER CANCER STAGE IV
     Dosage: 36 MG/M2, UNK
     Route: 042
  3. TS 1 [Concomitant]
     Indication: GALLBLADDER CANCER STAGE IV
     Dosage: 100 MG, UNK
     Route: 065

REACTIONS (4)
  - Decreased appetite [Unknown]
  - Pulmonary embolism [Not Recovered/Not Resolved]
  - Hypercalcaemia [Unknown]
  - Leukocytosis [Unknown]
